FAERS Safety Report 5331320-4 (Version None)
Quarter: 2007Q2

REPORT INFORMATION
  Report Type: 
  Country: None (occurrence: None)
  Receive Date: 20070522
  Receipt Date: 20070514
  Transmission Date: 20071010
  Serious: Yes (Hospitalization)
  Sender: FDA-Public Use
  Company Number: US-ASTRAZENECA-2005UW15595

PATIENT
  Age: 16 Year
  Sex: Female

DRUGS (11)
  1. SEROQUEL [Suspect]
     Dates: start: 20020301, end: 20040601
  2. RISPERDAL [Suspect]
     Dates: start: 20020301, end: 20040601
  3. ZYPREXA [Suspect]
     Dates: start: 20020301, end: 20040601
  4. EFFEXOR XR [Concomitant]
  5. CONCERTA [Concomitant]
  6. DEPAKOTE [Concomitant]
  7. PROZAC [Concomitant]
  8. TRILEPTAL [Concomitant]
  9. PAXIL [Concomitant]
  10. ZANTAC [Concomitant]
  11. KLONOPIN [Concomitant]

REACTIONS (6)
  - ANGER [None]
  - DEPRESSION [None]
  - DIABETES MELLITUS [None]
  - SELF-INJURIOUS IDEATION [None]
  - SUICIDAL IDEATION [None]
  - WEIGHT INCREASED [None]
